FAERS Safety Report 24401981 (Version 1)
Quarter: 2024Q4

REPORT INFORMATION
  Report Type: Spontaneous
  Country: US (occurrence: US)
  Receive Date: 20241007
  Receipt Date: 20241007
  Transmission Date: 20250115
  Serious: Yes (Hospitalization, Other)
  Sender: AMGEN
  Company Number: US-AMGEN-USASP2024193951

PATIENT
  Age: 76 Year
  Sex: Male

DRUGS (5)
  1. PEGFILGRASTIM [Suspect]
     Active Substance: PEGFILGRASTIM
     Indication: Product used for unknown indication
     Dosage: UNK
     Route: 065
  2. FILGRASTIM [Suspect]
     Active Substance: FILGRASTIM
     Indication: Off label use
     Route: 065
  3. FILGRASTIM [Suspect]
     Active Substance: FILGRASTIM
     Indication: Pancytopenia
  4. CISPLATIN [Concomitant]
     Active Substance: CISPLATIN
     Indication: Bladder transitional cell carcinoma
     Dosage: 4 CYCLES OF CHEMOTHERAPY, CYCLICAL
  5. GEMCITABINE [Concomitant]
     Active Substance: GEMCITABINE
     Indication: Bladder transitional cell carcinoma
     Dosage: 4 CYCLES OF CHEMOTHERAPY, CYCLICAL

REACTIONS (7)
  - Haematemesis [Unknown]
  - Neutropenic sepsis [Unknown]
  - Necrotising oesophagitis [Recovering/Resolving]
  - Hypotension [Unknown]
  - Pancytopenia [Unknown]
  - Blood lactic acid increased [Unknown]
  - Off label use [Unknown]
